FAERS Safety Report 20186154 (Version 1)
Quarter: 2021Q4

REPORT INFORMATION
  Report Type: Spontaneous
  Country: GR (occurrence: GR)
  Receive Date: 20211215
  Receipt Date: 20211215
  Transmission Date: 20220303
  Serious: Yes (Hospitalization)
  Sender: FDA-Public Use
  Company Number: GR-NOVARTISPH-NVSC2021GR282337

PATIENT

DRUGS (1)
  1. COSENTYX [Suspect]
     Active Substance: SECUKINUMAB
     Indication: Psoriasis
     Dosage: 300 MG, QMO (FOR 1 YEAR)
     Route: 065
     Dates: start: 2020, end: 2021

REACTIONS (2)
  - Colitis ulcerative [Unknown]
  - COVID-19 [Recovered/Resolved]
